FAERS Safety Report 10305784 (Version 1)
Quarter: 2014Q3

REPORT INFORMATION
  Report Type: Other
  Country: US (occurrence: US)
  Receive Date: 20140715
  Receipt Date: 20140715
  Transmission Date: 20150326
  Serious: Yes (Death, Other)
  Sender: FDA-Public Use
  Company Number: US-ACTELION-A-CH2014-101832

PATIENT
  Age: 10 Month
  Sex: Male

DRUGS (5)
  1. NITRIC OXIDE. [Concomitant]
     Active Substance: NITRIC OXIDE
  2. SILDENAFIL [Concomitant]
     Active Substance: SILDENAFIL
  3. OXYGEN. [Concomitant]
     Active Substance: OXYGEN
  4. TRACLEER [Suspect]
     Active Substance: BOSENTAN\BOSENTAN MONOHYDRATE
     Indication: PERSISTENT FOETAL CIRCULATION
     Route: 048
  5. MILRINONE [Concomitant]
     Active Substance: MILRINONE

REACTIONS (2)
  - Angioplasty [Unknown]
  - Pulmonary hypertensive crisis [Fatal]
